FAERS Safety Report 5192006-2 (Version None)
Quarter: 2006Q4

REPORT INFORMATION
  Report Type: 
  Country: None (occurrence: None)
  Receive Date: 20061220
  Receipt Date: 20061207
  Transmission Date: 20070319
  Serious: Yes (Other)
  Sender: FDA-Public Use
  Company Number: FR-2006-036737

PATIENT
  Age: 54 Year
  Sex: Female
  Weight: 65 kg

DRUGS (3)
  1. FLUDARA [Suspect]
     Indication: CHRONIC LYMPHOCYTIC LEUKAEMIA
     Dosage: 70 MG/D, OTHER, ORAL
     Route: 048
     Dates: start: 20030601, end: 20031101
  2. ENDOXAN [Concomitant]
  3. BACTRIM [Concomitant]

REACTIONS (5)
  - AUTOIMMUNE DISORDER [None]
  - INFLAMMATION [None]
  - MUSCULOSKELETAL PAIN [None]
  - SICCA SYNDROME [None]
  - SKIN LESION [None]
